FAERS Safety Report 5004478-4 (Version None)
Quarter: 2006Q2

REPORT INFORMATION
  Report Type: 
  Country: None (occurrence: None)
  Receive Date: 20060511
  Receipt Date: 20060501
  Transmission Date: 20061013
  Serious: Yes (Death, Hospitalization, Other)
  Sender: FDA-Public Use
  Company Number: 163-21880-06010637

PATIENT
  Age: 50 Year
  Sex: Male

DRUGS (5)
  1. REVLIMID [Suspect]
     Indication: CHRONIC LYMPHOCYTIC LEUKAEMIA
     Dosage: SEE IMAGE
     Route: 048
     Dates: start: 20060109, end: 20060123
  2. REVLIMID [Suspect]
     Indication: CHRONIC LYMPHOCYTIC LEUKAEMIA
     Dosage: SEE IMAGE
     Route: 048
     Dates: start: 20060209, end: 20060201
  3. VICODIN [Concomitant]
  4. DECADRON SRC [Concomitant]
  5. ACYCLOVIR [Concomitant]

REACTIONS (12)
  - BACTERIAL SEPSIS [None]
  - CHRONIC LYMPHOCYTIC LEUKAEMIA [None]
  - HAEMOGLOBIN DECREASED [None]
  - LEUKOPENIA [None]
  - LUNG INFILTRATION [None]
  - MALIGNANT NEOPLASM PROGRESSION [None]
  - MORAXELLA INFECTION [None]
  - NEUTROPENIA [None]
  - PAIN [None]
  - PYREXIA [None]
  - RESPIRATORY FAILURE [None]
  - THROMBOCYTOPENIA [None]
